FAERS Safety Report 7908372-8 (Version None)
Quarter: 2011Q4

REPORT INFORMATION
  Report Type: 
  Country: None (occurrence: None)
  Receive Date: 20111111
  Receipt Date: 20111027
  Transmission Date: 20120403
  Serious: Yes (Other)
  Sender: FDA-Public Use
  Company Number: US-JNJFOC-20111100495

PATIENT
  Weight: 2.38 kg

DRUGS (10)
  1. DOXORUBICIN HCL [Suspect]
     Indication: FOETAL EXPOSURE DURING PREGNANCY
     Route: 064
  2. DOXORUBICIN HCL [Suspect]
     Route: 064
  3. DOXORUBICIN HCL [Suspect]
     Route: 064
  4. PACLITAXEL [Suspect]
     Indication: FOETAL EXPOSURE DURING PREGNANCY
     Route: 064
  5. CYCLOPHOSPHAMIDE [Suspect]
     Route: 064
  6. CYCLOPHOSPHAMIDE [Suspect]
     Route: 064
  7. NEUPOGEN [Concomitant]
     Indication: FOETAL EXPOSURE DURING PREGNANCY
     Route: 064
  8. DOXORUBICIN HCL [Suspect]
     Route: 064
  9. CYCLOPHOSPHAMIDE [Suspect]
     Indication: FOETAL EXPOSURE DURING PREGNANCY
     Route: 064
  10. CYCLOPHOSPHAMIDE [Suspect]
     Route: 064

REACTIONS (1)
  - PREMATURE BABY [None]
